APPROVED DRUG PRODUCT: FLURAZEPAM HYDROCHLORIDE
Active Ingredient: FLURAZEPAM HYDROCHLORIDE
Strength: 15MG
Dosage Form/Route: CAPSULE;ORAL
Application: A071808 | Product #001
Applicant: HALSEY DRUG CO INC
Approved: Jan 7, 1988 | RLD: No | RS: No | Type: DISCN